FAERS Safety Report 17182999 (Version 1)
Quarter: 2019Q4

REPORT INFORMATION
  Report Type: Spontaneous
  Country: PL (occurrence: PL)
  Receive Date: 20191220
  Receipt Date: 20191220
  Transmission Date: 20200122
  Serious: Yes (Congenital Anomaly, Other)
  Sender: FDA-Public Use
  Company Number: PL-MYLANLABS-2019M1125911

PATIENT
  Sex: Female

DRUGS (1)
  1. OESCLIM 25 [Suspect]
     Active Substance: ESTRADIOL
     Indication: HORMONE REPLACEMENT THERAPY
     Dosage: DOSE - NOT SPECIFIED
     Route: 065

REACTIONS (20)
  - Onychoclasis [Unknown]
  - Hypersensitivity [Unknown]
  - Visual impairment [Unknown]
  - Burning sensation [Unknown]
  - Palpitations [Unknown]
  - Decreased appetite [Unknown]
  - Alopecia [Unknown]
  - Rash [Unknown]
  - Pruritus [Unknown]
  - Vomiting [Unknown]
  - Headache [Unknown]
  - Gastrooesophageal reflux disease [Unknown]
  - Dyspepsia [Unknown]
  - Amylase increased [Unknown]
  - Nausea [Unknown]
  - Dizziness [Unknown]
  - Dysuria [Unknown]
  - Muscle spasms [Unknown]
  - Abnormal weight gain [Unknown]
  - Blood pressure increased [Unknown]
